FAERS Safety Report 14824364 (Version 2)
Quarter: 2018Q4

REPORT INFORMATION
  Report Type: Spontaneous
  Country: US (occurrence: US)
  Receive Date: 20180429
  Receipt Date: 20181213
  Transmission Date: 20190204
  Serious: No
  Sender: FDA-Public Use
  Company Number: US-JNJFOC-20180412481

PATIENT
  Sex: Female
  Weight: 99.79 kg

DRUGS (6)
  1. XARELTO [Suspect]
     Active Substance: RIVAROXABAN
     Indication: CEREBROVASCULAR ACCIDENT PROPHYLAXIS
     Dosage: AROUND 10 AM.??NDC: 5045857930
     Route: 048
     Dates: start: 201803
  2. XARELTO [Suspect]
     Active Substance: RIVAROXABAN
     Indication: ATRIAL FIBRILLATION
     Dosage: AROUND 10 AM.??NDC: 5045857930
     Route: 048
     Dates: start: 201803
  3. PRAVASTATIN. [Concomitant]
     Active Substance: PRAVASTATIN
     Indication: BLOOD CHOLESTEROL INCREASED
     Route: 065
  4. ACEBUTOLOL [Concomitant]
     Active Substance: ACEBUTOLOL
     Route: 065
  5. VITAMIN C [Concomitant]
     Active Substance: ASCORBIC ACID
     Route: 065
  6. TURMERIC [Concomitant]
     Active Substance: HERBALS\TURMERIC
     Indication: ARTHRITIS
     Dosage: FOR 2 YEARS
     Route: 061
     Dates: start: 2016

REACTIONS (3)
  - Off label use [Unknown]
  - Inappropriate schedule of product administration [Unknown]
  - Wrong technique in product usage process [Unknown]

NARRATIVE: CASE EVENT DATE: 2018
